FAERS Safety Report 15707331 (Version 1)
Quarter: 2018Q4

REPORT INFORMATION
  Report Type: Spontaneous
  Country: US (occurrence: US)
  Receive Date: 20181127
  Receipt Date: 20181127
  Transmission Date: 20190205
  Serious: Yes (Other)
  Sender: FDA-Public Use
  Company Number: None

PATIENT
  Age: 72 Year
  Sex: Female
  Weight: 81.65 kg

DRUGS (9)
  1. LIPITOR [Suspect]
     Active Substance: ATORVASTATIN CALCIUM
     Indication: BLOOD CHOLESTEROL INCREASED
     Route: 048
  2. AVALIDE [Concomitant]
     Active Substance: HYDROCHLOROTHIAZIDE\IRBESARTAN
  3. ASPIRIN. [Concomitant]
     Active Substance: ASPIRIN
  4. PROBIOTICS [Concomitant]
     Active Substance: PROBIOTICS NOS
  5. OBERSARTIN [Concomitant]
  6. CALCIUM [Concomitant]
     Active Substance: CALCIUM
  7. VITAMIN D [Concomitant]
     Active Substance: CHOLECALCIFEROL
  8. CENTRUM [Concomitant]
     Active Substance: VITAMINS
  9. LOBOTALOL [Concomitant]

REACTIONS (1)
  - Swelling face [None]

NARRATIVE: CASE EVENT DATE: 20180101
